FAERS Safety Report 9752704 (Version 1)
Quarter: 2013Q4

REPORT INFORMATION
  Report Type: Report from Study
  Country: US (occurrence: US)
  Receive Date: 20131213
  Receipt Date: 20131213
  Transmission Date: 20140711
  Serious: Yes (Death, Hospitalization, Other)
  Sender: FDA-Public Use
  Company Number: US-CELGENEUS-163-50794-13121880

PATIENT
  Age: 72 Year
  Sex: Male
  Weight: 75.4 kg

DRUGS (4)
  1. VIDAZA [Suspect]
     Indication: NON-SMALL CELL LUNG CANCER
     Dosage: 40 MILLIGRAM/SQ. METER
     Route: 058
     Dates: start: 20130701
  2. VIDAZA [Suspect]
     Dosage: 40 MILLIGRAM/SQ. METER
     Route: 058
     Dates: start: 20130729, end: 20130801
  3. MS-275 [Suspect]
     Indication: NON-SMALL CELL LUNG CANCER
     Dosage: 7 MILLIGRAM
     Route: 048
     Dates: start: 20130701
  4. MS-275 [Suspect]
     Dosage: 7 MILLIGRAM
     Route: 048
     Dates: start: 20130729, end: 20130731

REACTIONS (5)
  - Non-small cell lung cancer [Fatal]
  - Confusional state [Unknown]
  - Fatigue [Unknown]
  - Pleural effusion [Unknown]
  - Cerebrovascular accident [Unknown]
